FAERS Safety Report 14483096 (Version 1)
Quarter: 2018Q1

REPORT INFORMATION
  Report Type: Spontaneous
  Country: CN (occurrence: CN)
  Receive Date: 20180203
  Receipt Date: 20180203
  Transmission Date: 20180509
  Serious: Yes (Life-Threatening, Hospitalization, Other)
  Sender: FDA-Public Use
  Company Number: CN-BAUSCH-BL-2018-002160

PATIENT
  Age: 72 Year
  Sex: Female

DRUGS (6)
  1. DOXORUBICIN [Suspect]
     Active Substance: DOXORUBICIN
     Indication: PLASMA CELL MYELOMA
     Dosage: DOXORUBICIN LIPOSOMES: 20 MG X 2 D INTRAVENOUS INJECTION; CYCLICAL
     Route: 042
     Dates: start: 20140414
  2. DEXAMETHASONE. [Suspect]
     Active Substance: DEXAMETHASONE
     Dosage: ORAL ADMINISTRATION OF DEXAMETHASONE AT 20 MG X 4 D, FOLLOWED BY AN INTERVAL FOR 4 X DAYS
     Route: 048
     Dates: start: 201404
  3. DEXAMETHASONE. [Suspect]
     Active Substance: DEXAMETHASONE
     Route: 065
     Dates: start: 201405
  4. THALIDOMIDE [Suspect]
     Active Substance: THALIDOMIDE
     Indication: PLASMA CELL MYELOMA
     Route: 065
     Dates: start: 201405
  5. VINDESINE [Suspect]
     Active Substance: VINDESINE
     Indication: PLASMA CELL MYELOMA
     Dosage: 1 MG X 4 D I.V, CYCLICAL
     Route: 042
     Dates: start: 20140414
  6. DEXAMETHASONE. [Suspect]
     Active Substance: DEXAMETHASONE
     Indication: PLASMA CELL MYELOMA
     Dosage: 20 MG X 4 D I.V, CYCLICAL
     Route: 042
     Dates: start: 20140414

REACTIONS (1)
  - Acute myeloid leukaemia [Unknown]
